FAERS Safety Report 4603140-7 (Version None)
Quarter: 2005Q1

REPORT INFORMATION
  Report Type: 
  Country: None (occurrence: None)
  Receive Date: 20050309
  Receipt Date: 20041215
  Transmission Date: 20050727
  Serious: Yes (Other)
  Sender: FDA-Public Use
  Company Number: PHEH2004US13370

PATIENT
  Age: 76 Year
  Sex: Female

DRUGS (9)
  1. CITRACAL [Concomitant]
  2. ZELNORM [Suspect]
     Indication: IRRITABLE BOWEL SYNDROME
     Dosage: UNK, UNK
  3. LISINOPRIL [Concomitant]
  4. DEMADEX [Concomitant]
  5. ACIPHEX [Concomitant]
  6. SLOW-K [Concomitant]
  7. ZIAC [Concomitant]
  8. PREMARIN [Concomitant]
  9. LIMBITROL [Concomitant]

REACTIONS (7)
  - BLOOD PRESSURE INCREASED [None]
  - CONDITION AGGRAVATED [None]
  - FAECES DISCOLOURED [None]
  - HYPERSENSITIVITY [None]
  - THROAT IRRITATION [None]
  - URINARY TRACT INFECTION [None]
  - URINE ANALYSIS ABNORMAL [None]
